FAERS Safety Report 4689855-3 (Version None)
Quarter: 2005Q2

REPORT INFORMATION
  Report Type: 
  Country: None (occurrence: None)
  Receive Date: 20050614
  Receipt Date: 20050604
  Transmission Date: 20051028
  Serious: Yes (Hospitalization)
  Sender: FDA-Public Use
  Company Number: US-JNJFOC-20050602091

PATIENT
  Age: 4 Year
  Sex: Male
  Weight: 16.78 kg

DRUGS (2)
  1. CHILDREN'S TYLENOL BUBBLEGUM BURST [Suspect]
     Route: 049
  2. CHILDREN'S TYLENOL BUBBLEGUM BURST [Suspect]
     Route: 049

REACTIONS (3)
  - ALANINE AMINOTRANSFERASE INCREASED [None]
  - ASPARTATE AMINOTRANSFERASE INCREASED [None]
  - DRUG INEFFECTIVE [None]
